FAERS Safety Report 5818859-X (Version None)
Quarter: 2008Q3

REPORT INFORMATION
  Report Type: 
  Country: None (occurrence: None)
  Receive Date: 20080723
  Receipt Date: 20080714
  Transmission Date: 20090109
  Serious: Yes (Death)
  Sender: FDA-Public Use
  Company Number: US-AMGEN-US267167

PATIENT
  Sex: Female
  Weight: 36.3 kg

DRUGS (1)
  1. PROCRIT [Suspect]
     Indication: ANAEMIA

REACTIONS (5)
  - ASTHENIA [None]
  - HYPERTENSION [None]
  - PNEUMONIA ASPIRATION [None]
  - REFUSAL OF TREATMENT BY PATIENT [None]
  - TONGUE NEOPLASM MALIGNANT STAGE UNSPECIFIED [None]
